FAERS Safety Report 9846683 (Version 1)
Quarter: 2013Q4

REPORT INFORMATION
  Report Type: Spontaneous
  Country: US (occurrence: None)
  Receive Date: 20131223
  Receipt Date: 20131223
  Transmission Date: 20140711
  Serious: Yes (Hospitalization)
  Sender: FDA-Public Use
  Company Number: 2013SCPR006047

PATIENT
  Age: 55 Year
  Sex: Male

DRUGS (1)
  1. FENTANYL CITRATE [Suspect]
     Indication: PAIN

REACTIONS (3)
  - Abdominal pain [None]
  - Drug ineffective [None]
  - Product quality issue [None]
